FAERS Safety Report 4534471-7 (Version None)
Quarter: 2004Q4

REPORT INFORMATION
  Report Type: 
  Country: None (occurrence: None)
  Receive Date: 20041214
  Receipt Date: 20041027
  Transmission Date: 20050328
  Serious: No
  Sender: FDA-Public Use
  Company Number: 2004241840US

PATIENT
  Sex: Female
  Weight: 72.6 kg

DRUGS (4)
  1. BEXTRA [Suspect]
     Indication: OSTEOARTHRITIS
     Dosage: 20 MG, QD, ORAL
     Route: 048
  2. DEXAMETHASONE [Suspect]
     Indication: SPINAL DISORDER
     Dosage: ORAL
     Route: 048
     Dates: start: 20041018
  3. PRILOSEC [Concomitant]
  4. MULTIVITAMIN [Concomitant]

REACTIONS (6)
  - BLOOD CHOLESTEROL INCREASED [None]
  - BLOOD GLUCOSE INCREASED [None]
  - INSOMNIA [None]
  - NERVOUSNESS [None]
  - PSYCHOMOTOR HYPERACTIVITY [None]
  - SPINAL DISORDER [None]
